FAERS Safety Report 11334047 (Version 1)
Quarter: 2015Q3

REPORT INFORMATION
  Report Type: Spontaneous
  Country: US (occurrence: US)
  Receive Date: 20150803
  Receipt Date: 20150803
  Transmission Date: 20151125
  Serious: No
  Sender: FDA-Public Use
  Company Number: US-SA-2015SA036001

PATIENT
  Sex: Female

DRUGS (1)
  1. AMBIEN [Suspect]
     Active Substance: ZOLPIDEM TARTRATE
     Route: 065

REACTIONS (5)
  - Somnambulism [Unknown]
  - Drug intolerance [Unknown]
  - Impulse-control disorder [Unknown]
  - Confusional state [Unknown]
  - Hallucination [Unknown]
